FAERS Safety Report 14330873 (Version 1)
Quarter: 2017Q4

REPORT INFORMATION
  Report Type: Report from Study
  Country: MX (occurrence: MX)
  Receive Date: 20171228
  Receipt Date: 20171228
  Transmission Date: 20180321
  Serious: Yes (Other)
  Sender: FDA-Public Use
  Company Number: MX-AMGEN-MEXSL2017163753

PATIENT
  Sex: Male

DRUGS (1)
  1. VECTIBIX [Suspect]
     Active Substance: PANITUMUMAB
     Indication: COLORECTAL CANCER METASTATIC
     Dosage: UNK (EVERY 15 DAYS)
     Route: 042
     Dates: start: 20161006, end: 20171102

REACTIONS (7)
  - Constipation [Unknown]
  - Diarrhoea [Unknown]
  - Skin irritation [Unknown]
  - Ileus paralytic [Unknown]
  - Hyperaesthesia [Unknown]
  - Dry skin [Unknown]
  - Rash [Not Recovered/Not Resolved]

NARRATIVE: CASE EVENT DATE: 2017
